FAERS Safety Report 9257631 (Version 6)
Quarter: 2014Q1

REPORT INFORMATION
  Report Type: Report from Study
  Country: FR (occurrence: FR)
  Receive Date: 20130426
  Receipt Date: 20140306
  Transmission Date: 20141002
  Serious: Yes (Hospitalization)
  Sender: FDA-Public Use
  Company Number: FR-JNJFOC-20130411207

PATIENT
  Age: 58 Year
  Sex: Female
  Weight: 67.6 kg

DRUGS (10)
  1. ABIRATERONE ACETATE [Suspect]
     Route: 048
  2. ABIRATERONE ACETATE [Suspect]
     Indication: BREAST CANCER METASTATIC
     Route: 048
     Dates: start: 20130222, end: 20130416
  3. PREDNISONE [Suspect]
     Indication: BREAST CANCER METASTATIC
     Route: 048
     Dates: start: 20130222, end: 20130416
  4. EXEMESTANE [Suspect]
     Indication: BREAST CANCER METASTATIC
     Route: 048
     Dates: start: 20130419
  5. EXEMESTANE [Suspect]
     Indication: BREAST CANCER METASTATIC
     Route: 048
     Dates: start: 20130321, end: 20130416
  6. DICLOFENAC [Concomitant]
     Indication: PELVIC PAIN
     Route: 048
     Dates: start: 20130206
  7. OMEPRAZOLE [Concomitant]
     Indication: GASTROINTESTINAL DISORDER THERAPY
     Route: 048
     Dates: start: 20130206
  8. PARACETAMOL [Concomitant]
     Indication: PELVIC PAIN
     Route: 048
  9. DENOSUMAB [Concomitant]
     Indication: PROPHYLAXIS
     Route: 058
     Dates: start: 20130206
  10. TRAMADOL [Concomitant]
     Indication: PELVIC PAIN
     Route: 048
     Dates: start: 20130221

REACTIONS (1)
  - Enteritis [Recovered/Resolved]
